FAERS Safety Report 7110753-X (Version None)
Quarter: 2010Q4

REPORT INFORMATION
  Report Type: 
  Country: None (occurrence: None)
  Receive Date: 20101118
  Receipt Date: 20101110
  Transmission Date: 20110411
  Serious: Yes (Hospitalization)
  Sender: FDA-Public Use
  Company Number: B0682395A

PATIENT
  Age: 69 Year
  Sex: Male
  Weight: 80 kg

DRUGS (2)
  1. AVODART [Suspect]
     Indication: PROSTATIC ADENOMA
     Dosage: .5MG PER DAY
     Route: 065
     Dates: start: 20100201, end: 20100901
  2. TAMSULOSIN HCL [Concomitant]
     Indication: PROSTATIC ADENOMA
     Dosage: .4MG PER DAY
     Route: 065
     Dates: start: 20100201, end: 20100901

REACTIONS (3)
  - PROSTATIC DISORDER [None]
  - RESIDUAL URINE VOLUME INCREASED [None]
  - URETHRAL STENOSIS [None]
